FAERS Safety Report 14340743 (Version 1)
Quarter: 2018Q1

REPORT INFORMATION
  Report Type: Spontaneous
  Country: DE (occurrence: DE)
  Receive Date: 20180101
  Receipt Date: 20180101
  Transmission Date: 20180509
  Serious: Yes (Other)
  Sender: FDA-Public Use
  Company Number: DE-GLENMARK PHARMACEUTICALS-2017GMK030087

PATIENT

DRUGS (7)
  1. IRON                               /00023503/ [Concomitant]
     Active Substance: IRON
     Indication: IRON DEFICIENCY ANAEMIA
     Dosage: UNK, MONTHLY
     Route: 042
  2. TOPIRAMAT GLENMARK 50MG FILMTABLETTEN [Suspect]
     Active Substance: TOPIRAMATE
     Dosage: 50 MG, BID, 50 MG IN MORNING AND EVENING
     Route: 048
  3. CORTISONE [Concomitant]
     Active Substance: CORTISONE\HYDROCORTISONE
     Indication: ASTHMA
     Dosage: UNK
  4. LISINO                             /00894002/ [Concomitant]
     Indication: SEASONAL ALLERGY
     Dosage: UNK, OCCASIONALLY IN SPRING IN CASE OF SYMPTOMS
     Route: 048
  5. LORATADINE. [Concomitant]
     Active Substance: LORATADINE
     Indication: SEASONAL ALLERGY
     Dosage: UNK, OCCASIONALLY IN SPRING IN CASE OF SYMPTOMS
     Route: 048
  6. TOPIRAMAT GLENMARK 50MG FILMTABLETTEN [Suspect]
     Active Substance: TOPIRAMATE
     Indication: MIGRAINE PROPHYLAXIS
     Dosage: 25 MG, UNK
     Route: 065
  7. TOPIRAMAT GLENMARK 50MG FILMTABLETTEN [Suspect]
     Active Substance: TOPIRAMATE
     Dosage: 50 MG, UNK
     Route: 065

REACTIONS (6)
  - Electrocardiogram ST segment depression [Recovered/Resolved]
  - Dyspnoea exertional [Not Recovered/Not Resolved]
  - Stress [Not Recovered/Not Resolved]
  - Feeling abnormal [Not Recovered/Not Resolved]
  - Electrocardiogram abnormal [Recovered/Resolved]
  - Performance status decreased [Not Recovered/Not Resolved]

NARRATIVE: CASE EVENT DATE: 20171211
